FAERS Safety Report 17950162 (Version 2)
Quarter: 2020Q3

REPORT INFORMATION
  Report Type: Spontaneous
  Country: US (occurrence: US)
  Receive Date: 20200626
  Receipt Date: 20200707
  Transmission Date: 20201103
  Serious: No
  Sender: FDA-Public Use
  Company Number: US-TEVA-2020-US-1792304

PATIENT
  Age: 74 Year
  Sex: Female

DRUGS (2)
  1. CLOTRIMAZOLE AND BETAMETHASON DIPROPIONATE [Suspect]
     Active Substance: BETAMETHASONE\CLOTRIMAZOLE
     Indication: SKIN INFECTION
     Dosage: FORM STRENGTH: CLOTRIMAZOLE AND BETAMETHASONE DIPROPIONATE,0.05 % / 1 % RESPECTIVELY
     Route: 061
     Dates: start: 2019
  2. CLOTRIMAZOLE AND BETAMETHASON DIPROPIONATE [Suspect]
     Active Substance: BETAMETHASONE\CLOTRIMAZOLE
     Dosage: FORM STRENGTH: CLOTRIMAZOLE AND BETAMETHASONE DIPROPIONATE,0.05 % / 1 % RESPECTIVELY
     Route: 065
     Dates: start: 2020

REACTIONS (3)
  - Application site erythema [Unknown]
  - Product physical consistency issue [Unknown]
  - Application site pain [Unknown]

NARRATIVE: CASE EVENT DATE: 202005
